FAERS Safety Report 19374860 (Version 2)
Quarter: 2021Q2

REPORT INFORMATION
  Report Type: Spontaneous
  Country: US (occurrence: US)
  Receive Date: 20210604
  Receipt Date: 20210617
  Transmission Date: 20210717
  Serious: Yes (Hospitalization)
  Sender: FDA-Public Use
  Company Number: US-MYLANLABS-2021M1032266

PATIENT
  Age: 19 Year
  Sex: Male

DRUGS (1)
  1. MINOCYCLINE HYDROCHLORIDE EXTENDED?RELEASE TABLETS USP [Suspect]
     Active Substance: MINOCYCLINE HYDROCHLORIDE
     Indication: ACNE
     Dosage: 105 MILLIGRAM, QD
     Route: 048

REACTIONS (3)
  - Bone hyperpigmentation [Recovered/Resolved]
  - Pigmentation disorder [Recovered/Resolved]
  - Joint deposit [Recovered/Resolved]
